FAERS Safety Report 16860914 (Version 1)
Quarter: 2019Q4

REPORT INFORMATION
  Report Type: Spontaneous
  Country: US (occurrence: US)
  Receive Date: 20190927
  Receipt Date: 20190927
  Transmission Date: 20200122
  Serious: Yes (Hospitalization)
  Sender: FDA-Public Use
  Company Number: None

PATIENT
  Age: 70 Year
  Sex: Male
  Weight: 90.7 kg

DRUGS (1)
  1. DANAZOL. [Suspect]
     Active Substance: DANAZOL
     Indication: HEREDITARY ANGIOEDEMA
     Route: 048

REACTIONS (1)
  - Renal artery thrombosis [None]

NARRATIVE: CASE EVENT DATE: 20190926
